FAERS Safety Report 10163172 (Version 1)
Quarter: 2014Q2

REPORT INFORMATION
  Report Type: Spontaneous
  Country: PT (occurrence: PT)
  Receive Date: 20140509
  Receipt Date: 20140509
  Transmission Date: 20141212
  Serious: Yes (Other)
  Sender: FDA-Public Use
  Company Number: PT-VIIV HEALTHCARE LIMITED-B0988740A

PATIENT
  Age: 37 Year
  Sex: Female

DRUGS (3)
  1. KIVEXA [Suspect]
     Indication: HIV INFECTION
     Route: 048
     Dates: start: 20140326, end: 20140410
  2. PREZISTA [Concomitant]
     Dosage: 800MG PER DAY
     Route: 048
     Dates: start: 20140326, end: 20140410
  3. NORVIR [Concomitant]
     Dosage: 100MG PER DAY
     Route: 048
     Dates: start: 20140326, end: 20140410

REACTIONS (4)
  - Rash generalised [Recovered/Resolved]
  - Face oedema [Recovered/Resolved]
  - Hypertension [Recovered/Resolved]
  - Tachycardia [Recovered/Resolved]
